APPROVED DRUG PRODUCT: ZILRETTA
Active Ingredient: TRIAMCINOLONE ACETONIDE
Strength: 32MG/VIAL
Dosage Form/Route: FOR SUSPENSION, EXTENDED RELEASE;INTRA-ARTICULAR
Application: N208845 | Product #001
Applicant: PACIRA PHARMACEUTICALS INC
Approved: Oct 6, 2017 | RLD: Yes | RS: Yes | Type: RX

PATENTS:
Patent 9555048 | Expires: Aug 4, 2031
Patent 8828440 | Expires: Aug 4, 2031